FAERS Safety Report 8431217-7 (Version None)
Quarter: 2012Q2

REPORT INFORMATION
  Report Type: 
  Country: None (occurrence: None)
  Receive Date: 20120612
  Receipt Date: 20120531
  Transmission Date: 20120825
  Serious: Yes (Other)
  Sender: FDA-Public Use
  Company Number: US-ELI_LILLY_AND_COMPANY-US201206000425

PATIENT
  Sex: Male
  Weight: 89.796 kg

DRUGS (2)
  1. OLANZAPINE [Suspect]
     Indication: SCHIZOPHRENIA
     Dosage: 405 MG, UNK
     Route: 030
     Dates: start: 20120501
  2. OLANZAPINE [Suspect]
     Dosage: 405 MG, UNK
     Route: 030
     Dates: start: 20120529

REACTIONS (7)
  - PROTRUSION TONGUE [None]
  - DIZZINESS [None]
  - DYSARTHRIA [None]
  - SEDATION [None]
  - DISORIENTATION [None]
  - ASTHENIA [None]
  - ATAXIA [None]
